FAERS Safety Report 14573122 (Version 5)
Quarter: 2018Q2

REPORT INFORMATION
  Report Type: Spontaneous
  Country: FR (occurrence: FR)
  Receive Date: 20180226
  Receipt Date: 20180424
  Transmission Date: 20180711
  Serious: Yes (Hospitalization, Other)
  Sender: FDA-Public Use
  Company Number: FR-SA-2018SA049203

PATIENT
  Age: 75 Year
  Sex: Male
  Weight: 88 kg

DRUGS (30)
  1. XARELTO [Suspect]
     Active Substance: RIVAROXABAN
     Indication: ATRIAL FIBRILLATION
     Route: 048
     Dates: start: 20170824, end: 20171025
  2. IRBESARTAN. [Suspect]
     Active Substance: IRBESARTAN
     Indication: HYPERTENSION
     Route: 048
     Dates: start: 20150101, end: 20171006
  3. SEROPLEX [Suspect]
     Active Substance: ESCITALOPRAM OXALATE
     Indication: DEPRESSIVE SYMPTOM
     Route: 048
     Dates: start: 20170101, end: 20170910
  4. NEFOPAM HYDROCHLORIDE [Suspect]
     Active Substance: NEFOPAM HYDROCHLORIDE
     Indication: PAIN
     Route: 048
  5. AMLODIPINE BESILATE [Suspect]
     Active Substance: AMLODIPINE BESYLATE
     Indication: HYPERTENSION
     Route: 048
     Dates: start: 20170825, end: 20170927
  6. IRBESARTAN. [Suspect]
     Active Substance: IRBESARTAN
     Indication: HYPERTENSION
     Route: 048
     Dates: start: 2015, end: 20171006
  7. BISOPROLOL FUMARATE. [Suspect]
     Active Substance: BISOPROLOL FUMARATE
     Indication: HYPERTENSION
     Route: 048
     Dates: start: 20171006
  8. TAVANIC [Suspect]
     Active Substance: LEVOFLOXACIN
     Indication: LUNG DISORDER
     Route: 048
     Dates: start: 20170905, end: 20170919
  9. FUROSEMIDE. [Suspect]
     Active Substance: FUROSEMIDE
     Indication: HYPERTENSION
     Route: 048
  10. TERBUTALINE SULFATE. [Suspect]
     Active Substance: TERBUTALINE SULFATE
     Indication: LUNG DISORDER
     Route: 055
     Dates: start: 20170914, end: 20170921
  11. MIRTAZAPINE. [Suspect]
     Active Substance: MIRTAZAPINE
     Indication: DEPRESSIVE SYMPTOM
     Route: 048
     Dates: start: 20170910
  12. METFORMIN HYDROCHLORIDE. [Suspect]
     Active Substance: METFORMIN HYDROCHLORIDE
     Indication: DIABETES MELLITUS
     Route: 048
     Dates: start: 20170824, end: 20171025
  13. DAFALGAN [Suspect]
     Active Substance: ACETAMINOPHEN
     Indication: PAIN
     Route: 048
     Dates: start: 20171019
  14. DIAZEPAM. [Suspect]
     Active Substance: DIAZEPAM
     Indication: DEPRESSIVE SYMPTOM
     Route: 048
     Dates: start: 20170101, end: 20170927
  15. PANTOPRAZOLE [Suspect]
     Active Substance: PANTOPRAZOLE
     Indication: GASTROOESOPHAGEAL REFLUX DISEASE
     Route: 048
     Dates: start: 2015, end: 20171025
  16. FUROSEMIDE. [Suspect]
     Active Substance: FUROSEMIDE
     Indication: HYPERTENSION
     Route: 048
     Dates: start: 20170825, end: 20171003
  17. METFORMIN HYDROCHLORIDE. [Suspect]
     Active Substance: METFORMIN HYDROCHLORIDE
     Indication: DIABETES MELLITUS
     Route: 048
     Dates: start: 20170824, end: 20171025
  18. DIFFU K [Suspect]
     Active Substance: POTASSIUM CHLORIDE
     Indication: HYPOKALAEMIA
     Route: 048
     Dates: start: 20170824, end: 20171003
  19. COLCHICINE OPOCALCIUM [Suspect]
     Active Substance: COLCHICINE
     Indication: GOUT
     Route: 048
     Dates: start: 20170914, end: 20170921
  20. NEFOPAM HYDROCHLORIDE [Suspect]
     Active Substance: NEFOPAM HYDROCHLORIDE
     Indication: PAIN
     Route: 048
  21. DAFALGAN [Suspect]
     Active Substance: ACETAMINOPHEN
     Indication: PAIN
     Route: 048
     Dates: start: 20171009
  22. TAVANIC [Suspect]
     Active Substance: LEVOFLOXACIN
     Indication: LUNG DISORDER
     Route: 048
     Dates: start: 20170905, end: 20170919
  23. DIFFU K [Suspect]
     Active Substance: POTASSIUM CHLORIDE
     Indication: HYPOKALAEMIA
     Route: 048
     Dates: start: 20170824, end: 20171003
  24. VALIUM [Suspect]
     Active Substance: DIAZEPAM
     Indication: DEPRESSIVE SYMPTOM
     Route: 065
     Dates: start: 20170101, end: 20170927
  25. ALPRAZOLAM. [Suspect]
     Active Substance: ALPRAZOLAM
     Indication: DEPRESSIVE SYMPTOM
     Route: 048
     Dates: start: 20170928
  26. ALPRAZOLAM. [Suspect]
     Active Substance: ALPRAZOLAM
     Indication: DEPRESSIVE SYMPTOM
     Route: 048
     Dates: start: 20170928
  27. PANTOPRAZOLE [Suspect]
     Active Substance: PANTOPRAZOLE
     Indication: GASTROOESOPHAGEAL REFLUX DISEASE
     Route: 048
     Dates: start: 20150101, end: 20171025
  28. FUROSEMIDE. [Suspect]
     Active Substance: FUROSEMIDE
     Indication: HYPERTENSION
     Route: 048
     Dates: start: 20170825, end: 20171003
  29. VALIUM [Suspect]
     Active Substance: DIAZEPAM
     Indication: DEPRESSIVE SYMPTOM
     Route: 048
     Dates: start: 20170101, end: 20170927
  30. NEFOPAM HYDROCHLORIDE [Suspect]
     Active Substance: NEFOPAM HYDROCHLORIDE
     Indication: PAIN
     Route: 048

REACTIONS (1)
  - Agranulocytosis [Recovered/Resolved]

NARRATIVE: CASE EVENT DATE: 20171024
